FAERS Safety Report 6355271-1 (Version None)
Quarter: 2009Q3

REPORT INFORMATION
  Report Type: 
  Country: None (occurrence: None)
  Receive Date: 20090914
  Receipt Date: 20090901
  Transmission Date: 20100115
  Serious: Yes (Life-Threatening)
  Sender: FDA-Public Use
  Company Number: GB-MYLANLABS-2009S1015537

PATIENT
  Age: 70 Year
  Sex: Male

DRUGS (5)
  1. ROPINIROLE [Suspect]
     Indication: PARKINSON'S DISEASE
     Route: 048
  2. ASPIRIN [Concomitant]
     Indication: PARKINSON'S DISEASE
     Route: 048
  3. FUROSEMIDE [Concomitant]
     Indication: POLYURIA
     Route: 048
  4. RAMIPRIL [Concomitant]
     Indication: BLOOD PRESSURE
     Route: 048
  5. SERETIDE [Concomitant]
     Indication: RESPIRATORY DISORDER
     Route: 055

REACTIONS (2)
  - RESPIRATORY FAILURE [None]
  - SLEEP APNOEA SYNDROME [None]
